FAERS Safety Report 13522337 (Version 1)
Quarter: 2017Q2

REPORT INFORMATION
  Report Type: Spontaneous
  Country: US (occurrence: US)
  Receive Date: 20170508
  Receipt Date: 20170508
  Transmission Date: 20170830
  Serious: Yes (Other)
  Sender: FDA-Public Use
  Company Number: None

PATIENT
  Age: 43 Year
  Sex: Female
  Weight: 90 kg

DRUGS (8)
  1. CALCIUM SUPPLEMENT [Concomitant]
     Active Substance: CALCIUM
  2. PROTONIX [Concomitant]
     Active Substance: PANTOPRAZOLE SODIUM
  3. ZOFRAN [Concomitant]
     Active Substance: ONDANSETRON HYDROCHLORIDE
  4. TYLENOL [Concomitant]
     Active Substance: ACETAMINOPHEN
  5. SYNTHROIS [Concomitant]
  6. MULTI VITAMIN [Concomitant]
     Active Substance: VITAMINS
  7. OXYCODONE 10MG [Suspect]
     Active Substance: OXYCODONE
     Indication: PAIN
     Dosage: ?          QUANTITY:1 TABLET(S);?EVERY 4 HOURS ORAL
     Route: 048
     Dates: start: 20170410, end: 20170410
  8. LABRDOL [Concomitant]

REACTIONS (5)
  - Suspected counterfeit product [None]
  - Drug ineffective [None]
  - General symptom [None]
  - Product substitution issue [None]
  - Condition aggravated [None]

NARRATIVE: CASE EVENT DATE: 20170410
